FAERS Safety Report 13525269 (Version 1)
Quarter: 2017Q2

REPORT INFORMATION
  Report Type: Spontaneous
  Country: US (occurrence: US)
  Receive Date: 20170508
  Receipt Date: 20170508
  Transmission Date: 20170830
  Serious: Yes (Hospitalization, Other)
  Sender: FDA-Public Use
  Company Number: US-ROCHE-1142631

PATIENT
  Age: 76 Year
  Sex: Female

DRUGS (1)
  1. AVASTIN [Suspect]
     Active Substance: BEVACIZUMAB
     Indication: RETINAL VEIN OCCLUSION
     Route: 065
     Dates: start: 201204

REACTIONS (10)
  - Hypertension [Unknown]
  - Treatment failure [Unknown]
  - Lethargy [Unknown]
  - Transient ischaemic attack [Unknown]
  - Epistaxis [Unknown]
  - Anaemia [Unknown]
  - Cognitive disorder [Unknown]
  - Blindness [Unknown]
  - Joint swelling [Unknown]
  - Memory impairment [Unknown]

NARRATIVE: CASE EVENT DATE: 201206
